FAERS Safety Report 11353149 (Version 1)
Quarter: 2015Q3

REPORT INFORMATION
  Report Type: Spontaneous
  Country: US (occurrence: US)
  Receive Date: 20150807
  Receipt Date: 20150807
  Transmission Date: 20151125
  Serious: No
  Sender: FDA-Public Use
  Company Number: US-JNJFOC-20150309537

PATIENT
  Sex: Male
  Weight: 95.26 kg

DRUGS (2)
  1. MENS ROGAINE EXTRA STRENGTH [Suspect]
     Active Substance: MINOXIDIL
     Route: 061
  2. MENS ROGAINE EXTRA STRENGTH [Suspect]
     Active Substance: MINOXIDIL
     Indication: ALOPECIA
     Dosage: A DAB IN THE MIDDLE OF MY HAND.
     Route: 061
     Dates: start: 2014, end: 2014

REACTIONS (4)
  - Influenza like illness [Recovering/Resolving]
  - Malaise [Recovering/Resolving]
  - Dizziness [Recovering/Resolving]
  - Diarrhoea [Recovering/Resolving]
